FAERS Safety Report 23187178 (Version 1)
Quarter: 2023Q4

REPORT INFORMATION
  Report Type: Spontaneous
  Country: US (occurrence: US)
  Receive Date: 20231115
  Receipt Date: 20231115
  Transmission Date: 20240109
  Serious: No
  Sender: FDA-Public Use
  Company Number: US-Calliditas-2023CAL01414

PATIENT
  Age: 56 Year
  Sex: Male
  Weight: 107 kg

DRUGS (1)
  1. TARPEYO [Suspect]
     Active Substance: BUDESONIDE
     Indication: IgA nephropathy
     Dosage: 16MG (4MG CAPSULES) ONCE DAILY
     Route: 048
     Dates: start: 20230802

REACTIONS (4)
  - Muscle spasms [Unknown]
  - Joint contracture [Unknown]
  - Muscle spasms [Unknown]
  - Impaired work ability [Unknown]
